FAERS Safety Report 4285581-3 (Version None)
Quarter: 2004Q1

REPORT INFORMATION
  Report Type: 
  Country: None (occurrence: None)
  Receive Date: 20040203
  Receipt Date: 20040120
  Transmission Date: 20041129
  Serious: Yes (Hospitalization)
  Sender: FDA-Public Use
  Company Number: 200410052EU

PATIENT
  Age: 60 Year
  Sex: Female

DRUGS (6)
  1. RIFAMPICIN [Suspect]
     Indication: PULMONARY TUBERCULOSIS
     Dosage: 45 MG/DAY
     Dates: start: 20020905, end: 20021003
  2. ISONIAZID [Suspect]
     Indication: PULMONARY TUBERCULOSIS
     Dosage: 30 MG/DAY
     Dates: start: 20020905, end: 20021003
  3. PYRAZINAMIDE [Suspect]
     Indication: PULMONARY TUBERCULOSIS
     Dosage: 1.2 G/DAY
     Dates: start: 20020905, end: 20021003
  4. ALLOPURINOL [Concomitant]
  5. REBAMIPIDE [Concomitant]
  6. ETHAMBUTOL HCL [Concomitant]

REACTIONS (4)
  - AGRANULOCYTOSIS [None]
  - HEPATITIS [None]
  - HYPERSENSITIVITY [None]
  - RASH [None]
